FAERS Safety Report 5869852-2 (Version None)
Quarter: 2008Q3

REPORT INFORMATION
  Report Type: 
  Country: None (occurrence: None)
  Receive Date: 20080904
  Receipt Date: 20080825
  Transmission Date: 20090109
  Serious: Yes (Other)
  Sender: FDA-Public Use
  Company Number: US-PFIZER INC-2008071323

PATIENT
  Sex: Female
  Weight: 61.363 kg

DRUGS (4)
  1. XALATAN [Suspect]
     Indication: GLAUCOMA
  2. METFORMIN HCL [Concomitant]
     Indication: DIABETES MELLITUS
     Route: 048
  3. GLIPIZIDE [Concomitant]
     Indication: DIABETES MELLITUS
     Route: 048
  4. LIPITOR [Concomitant]
     Indication: BLOOD CHOLESTEROL INCREASED
     Route: 048

REACTIONS (4)
  - BLOOD GLUCOSE DECREASED [None]
  - DRUG ADMINISTRATION ERROR [None]
  - INTRAOCULAR PRESSURE INCREASED [None]
  - WEIGHT DECREASED [None]
